FAERS Safety Report 26042787 (Version 1)
Quarter: 2025Q4

REPORT INFORMATION
  Report Type: Spontaneous
  Country: AU (occurrence: AU)
  Receive Date: 20251113
  Receipt Date: 20251113
  Transmission Date: 20260117
  Serious: Yes (Other)
  Sender: GLAXOSMITHKLINE
  Company Number: AU-GSKCCFAPAC-Case-02705726_AE-104857

PATIENT
  Age: 93 Year

DRUGS (1)
  1. TRELEGY ELLIPTA [Suspect]
     Active Substance: FLUTICASONE FUROATE\UMECLIDINIUM BROMIDE\VILANTEROL TRIFENATATE
     Indication: Product used for unknown indication
     Dosage: UNK, 200

REACTIONS (2)
  - Retinal haemorrhage [Unknown]
  - Macular degeneration [Unknown]
